FAERS Safety Report 13444466 (Version 2)
Quarter: 2017Q2

REPORT INFORMATION
  Report Type: Report from Study
  Country: NL (occurrence: NL)
  Receive Date: 20170414
  Receipt Date: 20170509
  Transmission Date: 20170830
  Serious: Yes (Hospitalization, Other)
  Sender: FDA-Public Use
  Company Number: NL-TEVA-760673ROM

PATIENT
  Age: 36 Year
  Sex: Female

DRUGS (10)
  1. INHIBIN [Concomitant]
  2. KALK TABLETTEN [Concomitant]
  3. VITAMIN B [Concomitant]
     Active Substance: VITAMIN B
  4. COPAXONE [Suspect]
     Active Substance: GLATIRAMER ACETATE
     Indication: RELAPSING-REMITTING MULTIPLE SCLEROSIS
     Dosage: 20 MILLIGRAM/MILLILITERS DAILY;
     Route: 058
     Dates: start: 20021010, end: 20170404
  5. CRANBERRY. [Concomitant]
     Active Substance: CRANBERRY
  6. DIAZEPAM 4MGR [Concomitant]
  7. MAGNESIUM [Concomitant]
     Active Substance: MAGNESIUM
  8. VITAMIN C [Concomitant]
     Active Substance: ASCORBIC ACID
  9. IMURAN [Concomitant]
     Active Substance: AZATHIOPRINE
  10. VITAMIN D [Concomitant]
     Active Substance: CHOLECALCIFEROL

REACTIONS (1)
  - Paralysis [Not Recovered/Not Resolved]

NARRATIVE: CASE EVENT DATE: 20170227
